FAERS Safety Report 9853697 (Version 1)
Quarter: 2014Q1

REPORT INFORMATION
  Report Type: Spontaneous
  Country: US (occurrence: US)
  Receive Date: 20140129
  Receipt Date: 20140129
  Transmission Date: 20141002
  Serious: No
  Sender: FDA-Public Use
  Company Number: US-GLAXOSMITHKLINE-A1007701A

PATIENT
  Age: 71 Year
  Sex: Female

DRUGS (2)
  1. WELLBUTRIN XL [Suspect]
     Indication: DEPRESSION
     Dosage: 300MG ALTERNATE DAYS
     Route: 048
     Dates: start: 201207
  2. VITAMIN D [Concomitant]
     Dates: start: 2011

REACTIONS (1)
  - Constipation [Not Recovered/Not Resolved]
